FAERS Safety Report 19270982 (Version 1)
Quarter: 2021Q2

REPORT INFORMATION
  Report Type: Report from Study
  Country: US (occurrence: US)
  Receive Date: 20210518
  Receipt Date: 20210518
  Transmission Date: 20210717
  Serious: No
  Sender: FDA-Public Use
  Company Number: US-INCYTE CORPORATION-2021IN003172

PATIENT

DRUGS (1)
  1. JAKAFI [Suspect]
     Active Substance: RUXOLITINIB
     Indication: POLYCYTHAEMIA VERA
     Dosage: 5 MILLIGRAM (5MG IN THE MORNING AND 2 TABLETS OF 5 MG IN THE EVENING)
     Route: 048

REACTIONS (3)
  - Product availability issue [Unknown]
  - Weight increased [Unknown]
  - Product distribution issue [Unknown]
